FAERS Safety Report 12746251 (Version 2)
Quarter: 2016Q3

REPORT INFORMATION
  Report Type: Spontaneous
  Country: US (occurrence: US)
  Receive Date: 20160915
  Receipt Date: 20160915
  Transmission Date: 20161109
  Serious: No
  Sender: FDA-Public Use
  Company Number: US-NEPHRON PHARMACEUTICALS CORPORATION-1057342

PATIENT
  Age: 68 Year
  Sex: Female
  Weight: 63.64 kg

DRUGS (3)
  1. IPRATROPIUM BROMIDE INHALATION SOLUTION, 0.02% [Suspect]
     Active Substance: IPRATROPIUM BROMIDE
     Indication: PULMONARY FIBROSIS
     Route: 055
     Dates: start: 20160831, end: 20160912
  2. BUDESONIDE INHALATION [Concomitant]
     Active Substance: BUDESONIDE
  3. OXYGEN. [Concomitant]
     Active Substance: OXYGEN

REACTIONS (2)
  - Oropharyngeal pain [Recovered/Resolved]
  - Rash pruritic [Not Recovered/Not Resolved]

NARRATIVE: CASE EVENT DATE: 20160831
